FAERS Safety Report 6029483-0 (Version None)
Quarter: 2009Q1

REPORT INFORMATION
  Report Type: 
  Country: None (occurrence: None)
  Receive Date: 20090105
  Receipt Date: 20090105
  Transmission Date: 20090719
  Serious: Yes (Life-Threatening)
  Sender: FDA-Public Use
  Company Number: None

PATIENT
  Sex: Female
  Weight: 51.2 kg

DRUGS (8)
  1. CIPRO [Suspect]
     Indication: URINARY TRACT INFECTION
     Dosage: 400 MG EVERY 12 HOURS IV
     Route: 042
     Dates: start: 20081110, end: 20081112
  2. LISINOPRIL [Concomitant]
  3. SYNTHROID [Concomitant]
  4. ZETIA [Concomitant]
  5. INSULIN NPH [Concomitant]
  6. ZOSYN [Concomitant]
  7. INSULIN [Concomitant]
  8. ZYPREXA [Concomitant]

REACTIONS (6)
  - BLOOD GLUCOSE INCREASED [None]
  - HYPOGLYCAEMIA [None]
  - PNEUMONIA [None]
  - RENAL FAILURE [None]
  - SEPSIS [None]
  - UROSEPSIS [None]
